FAERS Safety Report 8512575-1 (Version None)
Quarter: 2012Q3

REPORT INFORMATION
  Report Type: 
  Country: None (occurrence: None)
  Receive Date: 20120716
  Receipt Date: 20120706
  Transmission Date: 20120928
  Serious: Yes (Other)
  Sender: FDA-Public Use
  Company Number: US-ROCHE-1085753

PATIENT
  Sex: Female

DRUGS (3)
  1. RIBAVIRIN [Suspect]
     Indication: HEPATITIS C
  2. TELAPREVIR [Concomitant]
  3. PEGASYS [Suspect]
     Indication: HEPATITIS C
     Route: 058

REACTIONS (4)
  - BIOPSY LIVER [None]
  - HEPATITIS C VIRUS TEST POSITIVE [None]
  - FIBROSIS [None]
  - HEPATITIS C [None]
